FAERS Safety Report 4597181-6 (Version None)
Quarter: 2005Q1

REPORT INFORMATION
  Report Type: 
  Country: None (occurrence: None)
  Receive Date: 20050301
  Receipt Date: 20050216
  Transmission Date: 20050727
  Serious: Yes (Hospitalization)
  Sender: FDA-Public Use
  Company Number: 2005-125235-NL

PATIENT
  Age: 19 Year
  Sex: Female

DRUGS (4)
  1. DESOGESTREL AND ETHINYL ESTRADIOL [Suspect]
     Indication: ORAL CONTRACEPTION
     Dosage: DF ORAL
     Route: 048
     Dates: start: 19910701, end: 19911020
  2. CITODON [Concomitant]
  3. SOMADRIL COMP. [Concomitant]
  4. ERYTHORMYCIN [Concomitant]

REACTIONS (9)
  - ABASIA [None]
  - CHEST PAIN [None]
  - DEEP VEIN THROMBOSIS [None]
  - DYSSTASIA [None]
  - GROIN PAIN [None]
  - PAIN IN EXTREMITY [None]
  - PLEURISY [None]
  - PULMONARY EMBOLISM [None]
  - THROMBOSIS [None]
